FAERS Safety Report 25803567 (Version 3)
Quarter: 2025Q4

REPORT INFORMATION
  Report Type: Spontaneous
  Country: US (occurrence: None)
  Receive Date: 20250915
  Receipt Date: 20251031
  Transmission Date: 20260117
  Serious: No
  Sender: INCYTE
  Company Number: US-INCYTE CORPORATION-2025IN009854

PATIENT
  Age: 64 Year
  Weight: 66.213 kg

DRUGS (9)
  1. JAKAFI [Suspect]
     Active Substance: RUXOLITINIB
     Indication: Polycythaemia vera
     Dosage: 10 MILLIGRAM, BID
  2. ASPIRIN [Concomitant]
     Active Substance: ASPIRIN
     Indication: Product used for unknown indication
     Dosage: UNK
     Route: 065
  3. FUROSEMIDE [Concomitant]
     Active Substance: FUROSEMIDE
     Indication: Product used for unknown indication
     Dosage: UNK
     Route: 065
  4. LEVOTHYROXINE [Concomitant]
     Active Substance: LEVOTHYROXINE
     Indication: Product used for unknown indication
     Dosage: UNK
     Route: 065
  5. VITAMIN D3 [Concomitant]
     Active Substance: CHOLECALCIFEROL
     Indication: Product used for unknown indication
     Dosage: UNK
     Route: 065
  6. LYSINE [Concomitant]
     Active Substance: LYSINE
     Indication: Product used for unknown indication
     Dosage: UNK
     Route: 065
  7. FOLIC ACID [Concomitant]
     Active Substance: FOLIC ACID
     Indication: Product used for unknown indication
     Dosage: UNK
     Route: 065
  8. BIFIDOBACTERIUM ANIMALIS LACTIS [Concomitant]
     Active Substance: BIFIDOBACTERIUM ANIMALIS LACTIS
     Indication: Product used for unknown indication
     Dosage: UNK
     Route: 065
  9. BERBERINE HCL [Concomitant]
     Indication: Product used for unknown indication
     Dosage: UNK
     Route: 065

REACTIONS (4)
  - Platelet count abnormal [Unknown]
  - Product dose omission issue [Unknown]
  - Product distribution issue [Unknown]
  - Diarrhoea [Unknown]
